FAERS Safety Report 7591423-0 (Version None)
Quarter: 2011Q2

REPORT INFORMATION
  Report Type: 
  Country: None (occurrence: None)
  Receive Date: 20110630
  Receipt Date: 20110630
  Transmission Date: 20111010
  Serious: Yes (Other)
  Sender: FDA-Public Use
  Company Number: None

PATIENT
  Sex: Male
  Weight: 102.5129 kg

DRUGS (1)
  1. VASOTEC [Suspect]
     Indication: HYPERTENSION
     Dates: start: 20080819, end: 20110629

REACTIONS (2)
  - PRODUCT SUBSTITUTION ISSUE [None]
  - HEADACHE [None]
